FAERS Safety Report 8812775 (Version 2)
Quarter: 2012Q4

REPORT INFORMATION
  Report Type: 
  Country: US (occurrence: US)
  Receive Date: 20120927
  Receipt Date: 20121119
  Transmission Date: 20130627
  Serious: Yes (Other)
  Sender: FDA-Public Use
  Company Number: US-ELI_LILLY_AND_COMPANY-US201209005341

PATIENT
  Sex: Male
  Weight: 136.33 kg

DRUGS (4)
  1. HUMALOG 50% LISPRO, 50% NPL [Suspect]
     Indication: TYPE 2 DIABETES MELLITUS
     Dosage: UNK, unknown
     Route: 058
     Dates: start: 20110119
  2. HUMALOG 50% LISPRO, 50% NPL [Suspect]
     Dosage: 20 u, each morning
     Route: 058
  3. HUMALOG 50% LISPRO, 50% NPL [Suspect]
     Dosage: 22 u, qd
     Route: 058
  4. HUMALOG 50% LISPRO, 50% NPL [Suspect]
     Dosage: 24 u, each evening
     Route: 058

REACTIONS (2)
  - Cerebrovascular accident [Unknown]
  - Communication disorder [Not Recovered/Not Resolved]
